FAERS Safety Report 8153730-2 (Version None)
Quarter: 2012Q1

REPORT INFORMATION
  Report Type: 
  Country: None (occurrence: None)
  Receive Date: 20120221
  Receipt Date: 20120216
  Transmission Date: 20120608
  Serious: Yes (Hospitalization)
  Sender: FDA-Public Use
  Company Number: US-GLAXOSMITHKLINE-A0886910A

PATIENT
  Age: 49 Year
  Sex: Male
  Weight: 130.9 kg

DRUGS (1)
  1. AVANDIA [Suspect]
     Indication: DIABETES MELLITUS
     Route: 048
     Dates: end: 20050101

REACTIONS (2)
  - MYOCARDIAL INFARCTION [None]
  - CORONARY ARTERIAL STENT INSERTION [None]
